FAERS Safety Report 4895759-3 (Version None)
Quarter: 2006Q1

REPORT INFORMATION
  Report Type: 
  Country: None (occurrence: None)
  Receive Date: 20060123
  Receipt Date: 20060109
  Transmission Date: 20060701
  Serious: Yes (Death)
  Sender: FDA-Public Use
  Company Number: THYM-10849

PATIENT
  Age: 58 Year
  Sex: Male
  Weight: 107.8 kg

DRUGS (2)
  1. THYMOGLOBULIN [Suspect]
     Indication: BONE MARROW CONDITIONING REGIMEN
     Dosage: 2.5 MG/KG
     Dates: start: 20021007, end: 20021010
  2. THYMOGLOBULIN [Suspect]
     Indication: STEM CELL TRANSPLANT
     Dosage: 2.5 MG/KG
     Dates: start: 20021007, end: 20021010

REACTIONS (7)
  - BLOOD TEST ABNORMAL [None]
  - FUNGAL SKIN INFECTION [None]
  - GENERAL PHYSICAL HEALTH DETERIORATION [None]
  - GRAFT VERSUS HOST DISEASE [None]
  - REFUSAL OF TREATMENT BY PATIENT [None]
  - STEM CELL TRANSPLANT [None]
  - UPPER RESPIRATORY TRACT INFECTION [None]
